FAERS Safety Report 7399061-X (Version None)
Quarter: 2011Q1

REPORT INFORMATION
  Report Type: 
  Country: None (occurrence: None)
  Receive Date: 20110301
  Receipt Date: 20100224
  Transmission Date: 20110831
  Serious: Yes (Hospitalization, Other)
  Sender: FDA-Public Use
  Company Number: RB-03285-2010

PATIENT
  Sex: Male

DRUGS (2)
  1. SUBUTEX [Suspect]
     Dosage: TRANSPLACENTAL
     Route: 064
  2. SUBOXONE [Suspect]
     Indication: DRUG DEPENDENCE
     Dosage: TRANSPLACENTAL
     Route: 064

REACTIONS (1)
  - DRUG WITHDRAWAL SYNDROME NEONATAL [None]
